FAERS Safety Report 15793239 (Version 1)
Quarter: 2019Q1

REPORT INFORMATION
  Report Type: Report from Study
  Country: IE (occurrence: IE)
  Receive Date: 20190107
  Receipt Date: 20190107
  Transmission Date: 20190417
  Serious: Yes (Hospitalization, Other)
  Sender: FDA-Public Use
  Company Number: -ASTRAZENECA-2019SE01419

PATIENT
  Age: 8 Month
  Sex: Female

DRUGS (4)
  1. FLOXAPEN [Concomitant]
     Active Substance: FLUCLOXACILLIN
     Indication: PRODUCT USED FOR UNKNOWN INDICATION
     Route: 048
  2. SYNAGIS [Suspect]
     Active Substance: PALIVIZUMAB
     Indication: CYSTIC FIBROSIS
     Route: 030
     Dates: start: 20181031
  3. SODIUM CHLORIDE. [Concomitant]
     Active Substance: SODIUM CHLORIDE
     Indication: PRODUCT USED FOR UNKNOWN INDICATION
     Route: 048
  4. DECAS [Concomitant]
     Indication: PRODUCT USED FOR UNKNOWN INDICATION
     Route: 048

REACTIONS (5)
  - Cough [Recovered/Resolved]
  - Wheezing [Recovered/Resolved]
  - Dyspnoea [Recovered/Resolved]
  - Cystic fibrosis [Recovered/Resolved]
  - Respiratory syncytial virus test positive [Recovered/Resolved]

NARRATIVE: CASE EVENT DATE: 201812
